FAERS Safety Report 9855287 (Version 2)
Quarter: 2014Q1

REPORT INFORMATION
  Report Type: Spontaneous
  Country: PT (occurrence: PT)
  Receive Date: 20140130
  Receipt Date: 20140221
  Transmission Date: 20141002
  Serious: Yes (Other)
  Sender: FDA-Public Use
  Company Number: PT-MPIJNJ-2014JNJ000235

PATIENT
  Sex: 0

DRUGS (3)
  1. VELCADE [Suspect]
     Indication: TRANSPLANT
     Dosage: 1.3 MG/M2, UNK
     Route: 065
  2. CYCLOPHOSPHAMIDE [Concomitant]
     Indication: TRANSPLANT
  3. DEXAMETHASONE [Concomitant]
     Indication: TRANSPLANT

REACTIONS (3)
  - Guillain-Barre syndrome [Unknown]
  - Paralysis [Recovering/Resolving]
  - Off label use [Unknown]
